FAERS Safety Report 17157518 (Version 1)
Quarter: 2019Q4

REPORT INFORMATION
  Report Type: Spontaneous
  Country: JP (occurrence: JP)
  Receive Date: 20191216
  Receipt Date: 20191216
  Transmission Date: 20200122
  Serious: Yes (Death, Hospitalization, Other)
  Sender: FDA-Public Use
  Company Number: JP-AMGEN-JPNSP2019207933

PATIENT
  Age: 73 Year
  Sex: Female
  Weight: 58.7 kg

DRUGS (3)
  1. PARSABIV [Suspect]
     Active Substance: ETELCALCETIDE HYDROCHLORIDE
     Indication: HYPERPARATHYROIDISM SECONDARY
     Dosage: 5 MILLIGRAM, 3 TIMES/WK (5 MG, Q56H)
     Route: 010
     Dates: start: 20190121, end: 20191116
  2. MAXACALCITOL [Concomitant]
     Active Substance: MAXACALCITOL
     Dosage: UNK (5-2.5-5 MUG)
     Route: 065
     Dates: start: 20190320, end: 20191116
  3. ALFACALCIDOL [Concomitant]
     Active Substance: ALFACALCIDOL
     Dosage: 0.5 MICROGRAM, QD (0.5 UG, EVERYDAY)
     Route: 048
     Dates: end: 20190320

REACTIONS (2)
  - Post procedural sepsis [Fatal]
  - Aortic valve disease mixed [Fatal]

NARRATIVE: CASE EVENT DATE: 20191116
